FAERS Safety Report 4373320-7 (Version None)
Quarter: 2004Q2

REPORT INFORMATION
  Report Type: 
  Country: None (occurrence: None)
  Receive Date: 20040603
  Receipt Date: 20040521
  Transmission Date: 20050107
  Serious: Yes (Hospitalization, Other)
  Sender: FDA-Public Use
  Company Number: 2004034667

PATIENT
  Sex: Female
  Weight: 58.9676 kg

DRUGS (7)
  1. ZOLOFT [Suspect]
     Indication: DEPRESSION
     Dosage: 50 MG (50 MG, 1 IN 1 D), ORAL
     Route: 048
  2. CLONAZEPAM [Concomitant]
  3. TRAZODONE HCL [Concomitant]
  4. MONTELUKAST (MONTELUKAST) [Concomitant]
  5. BUSPIRONE HCL [Concomitant]
  6. ALBUTEROL SULFATE [Concomitant]
  7. COMBIVENT [Concomitant]

REACTIONS (2)
  - NEPHROLITHIASIS [None]
  - PROCEDURAL COMPLICATION [None]
